FAERS Safety Report 9612041 (Version 1)
Quarter: 2013Q4

REPORT INFORMATION
  Report Type: Spontaneous
  Country: US (occurrence: US)
  Receive Date: 20131010
  Receipt Date: 20131010
  Transmission Date: 20140711
  Serious: Yes (Other)
  Sender: FDA-Public Use
  Company Number: US-PURDUE-USA-2013-0107341

PATIENT
  Sex: Male

DRUGS (1)
  1. OXYCONTIN (NDA 22-272) [Suspect]
     Indication: PRODUCT USED FOR UNKNOWN INDICATION
     Dosage: 40MG , UNKNOWN
     Route: 048

REACTIONS (5)
  - Suicidal ideation [Unknown]
  - Personality disorder [Unknown]
  - Memory impairment [Unknown]
  - Depression [Unknown]
  - Crying [Unknown]
